FAERS Safety Report 7750507-4 (Version None)
Quarter: 2011Q3

REPORT INFORMATION
  Report Type: 
  Country: None (occurrence: None)
  Receive Date: 20110914
  Receipt Date: 20110901
  Transmission Date: 20111222
  Serious: Yes (Death, Hospitalization)
  Sender: FDA-Public Use
  Company Number: HU-ELI_LILLY_AND_COMPANY-HU201108000565

PATIENT
  Sex: Male

DRUGS (16)
  1. GEMCITABINE HYDROCHLORIDE [Suspect]
     Indication: NON-SMALL CELL LUNG CANCER
     Dosage: 2200 MG, 2 X 3 WEEKS
     Route: 042
     Dates: start: 20091109
  2. ONDANSETRON [Concomitant]
     Dosage: UNK
     Dates: start: 20091109
  3. BISOPROLOL FUMARATE [Concomitant]
     Dosage: UNK
     Dates: start: 20091215
  4. SPIRIVA [Concomitant]
     Dosage: UNK
     Dates: start: 20091104, end: 20100407
  5. EPREX [Concomitant]
     Dosage: UNK
     Dates: start: 20091127, end: 20091220
  6. NEUPOGEN [Concomitant]
     Dosage: UNK
     Dates: start: 20100201
  7. NEORECORMON [Concomitant]
     Dosage: UNK
     Dates: start: 20091215
  8. BEVACIZUMAB [Suspect]
     Indication: NON-SMALL CELL LUNG CANCER
     Dosage: 540 MG, 1 X PER 3 WEEKS
     Route: 042
     Dates: start: 20091109
  9. SERETIDE [Concomitant]
     Dosage: UNK
     Dates: start: 20091104, end: 20100407
  10. AUGMENTIN '125' [Concomitant]
     Dosage: UNK
     Dates: start: 20091020, end: 20100323
  11. KALIUM [Concomitant]
     Dosage: UNK
     Dates: start: 20091020
  12. HYDROMORPHONE HCL [Concomitant]
     Dosage: UNK
     Dates: start: 20100104
  13. NEULASTA [Concomitant]
     Dosage: UNK
     Dates: start: 20100217
  14. MEDROL [Concomitant]
     Dosage: UNK
     Dates: start: 20091020
  15. MEGASIN [Concomitant]
     Dosage: UNK
     Dates: start: 20091109, end: 20100407
  16. CARBOPLATIN [Suspect]
     Indication: NON-SMALL CELL LUNG CANCER
     Dosage: 1300 MG, 1 X PER 3 WEEKS
     Route: 042
     Dates: start: 20091109

REACTIONS (7)
  - PNEUMONIA [None]
  - LEUKOPENIA [None]
  - EMPYEMA [None]
  - ANAEMIA [None]
  - NEUTROPENIA [None]
  - THROMBOCYTOPENIA [None]
  - GRANULOCYTOPENIA [None]
